FAERS Safety Report 10928027 (Version 1)
Quarter: 2015Q1

REPORT INFORMATION
  Report Type: Spontaneous
  Country: None (occurrence: None)
  Receive Date: 20150317
  Receipt Date: 20150317
  Transmission Date: 20150721
  Serious: No
  Sender: FDA-Public Use
  Company Number: None

PATIENT
  Age: 29 Year
  Sex: Male

DRUGS (1)
  1. VENLAFAXINE XR 150MG [Suspect]
     Active Substance: VENLAFAXINE HYDROCHLORIDE
     Dosage: 1 TAB QD ORAL
     Route: 048

REACTIONS (6)
  - Weight decreased [None]
  - Pain [None]
  - Serotonin syndrome [None]
  - Headache [None]
  - Diarrhoea [None]
  - Pyrexia [None]
